FAERS Safety Report 13466087 (Version 5)
Quarter: 2019Q4

REPORT INFORMATION
  Report Type: Spontaneous
  Country: US (occurrence: US)
  Receive Date: 20170421
  Receipt Date: 20191004
  Transmission Date: 20200122
  Serious: No
  Sender: FDA-Public Use
  Company Number: US-PFIZER INC-2017170876

PATIENT
  Age: 68 Year
  Sex: Female
  Weight: 83.45 kg

DRUGS (13)
  1. XELJANZ XR [Suspect]
     Active Substance: TOFACITINIB CITRATE
     Indication: RHEUMATOID ARTHRITIS
     Dosage: 11 MG, 1X/DAY
     Route: 048
     Dates: start: 20170119
  2. DEXILANT [Concomitant]
     Active Substance: DEXLANSOPRAZOLE
     Indication: ABDOMINAL DISCOMFORT
     Dosage: 60 MG, AS NEEDED
  3. XELJANZ XR [Suspect]
     Active Substance: TOFACITINIB CITRATE
     Dosage: 11 MG, 1X/DAY
     Route: 048
     Dates: start: 20170119
  4. WARFARIN SODIUM. [Concomitant]
     Active Substance: WARFARIN SODIUM
     Indication: CARDIAC DISORDER
     Dosage: 5 MG, UNK(1 AND HALF TUES PLUSTHURS 1 ALL OTHER DAYS)
  5. METOPROLOL SUCCINATE. [Concomitant]
     Active Substance: METOPROLOL SUCCINATE
     Dosage: 100 MG, DAILY
  6. XELJANZ XR [Suspect]
     Active Substance: TOFACITINIB CITRATE
     Dosage: 11 MG, DAILY
     Route: 048
     Dates: start: 20170413
  7. TORSEMIDE. [Concomitant]
     Active Substance: TORSEMIDE
     Dosage: 10 MG, DAILY
  8. SPIRONOLACTONE. [Concomitant]
     Active Substance: SPIRONOLACTONE
     Dosage: 25 MG, DAILY
  9. FELODIPINE. [Concomitant]
     Active Substance: FELODIPINE
     Indication: BLOOD PRESSURE ABNORMAL
     Dosage: 5 MG, DAILY
  10. XELJANZ XR [Suspect]
     Active Substance: TOFACITINIB CITRATE
     Dosage: 11 MG, DAILY
  11. HYDROXYCHLOROQUINE [Concomitant]
     Active Substance: HYDROXYCHLOROQUINE
     Dosage: UNK UNK, DAILY (1-200 MG PER DAY.)
  12. KLOR-CON [Concomitant]
     Active Substance: POTASSIUM CHLORIDE
     Dosage: 10 MG, DAILY
  13. ATORVASTATIN CALCIUM. [Concomitant]
     Active Substance: ATORVASTATIN CALCIUM
     Dosage: 40 MG, 1X/DAY

REACTIONS (9)
  - Paraesthesia oral [Unknown]
  - Rhinorrhoea [Unknown]
  - Tenderness [Not Recovered/Not Resolved]
  - Pain in extremity [Not Recovered/Not Resolved]
  - Pain of skin [Not Recovered/Not Resolved]
  - Hypoaesthesia oral [Unknown]
  - Nasopharyngitis [Unknown]
  - Feeling hot [Unknown]
  - Pain [Not Recovered/Not Resolved]
